FAERS Safety Report 13535185 (Version 3)
Quarter: 2017Q3

REPORT INFORMATION
  Report Type: Spontaneous
  Country: NO (occurrence: NO)
  Receive Date: 20170511
  Receipt Date: 20170821
  Transmission Date: 20171127
  Serious: Yes (Hospitalization, Other)
  Sender: FDA-Public Use
  Company Number: PHHY2016NO176670

PATIENT
  Sex: Female

DRUGS (17)
  1. KEPPRA [Suspect]
     Active Substance: LEVETIRACETAM
     Dosage: 1500 MG, QD (500 PLUS 1000 MG)
     Route: 065
  2. ORFIRIL [Suspect]
     Active Substance: VALPROIC ACID
     Indication: EPILEPSY
     Dosage: 1200 MG,QD (600MG X2 (TRY TO PHASE OUT IN 2004)
     Route: 065
     Dates: start: 19871014
  3. LAMICTAL [Suspect]
     Active Substance: LAMOTRIGINE
     Indication: EPILEPSY
     Route: 065
     Dates: start: 1995
  4. FOLIC ACID. [Concomitant]
     Active Substance: FOLIC ACID
     Indication: PRODUCT USED FOR UNKNOWN INDICATION
     Dosage: 4 DF, QD (0.4 MG)
     Route: 065
  5. ORFIRIL [Suspect]
     Active Substance: VALPROIC ACID
     Dosage: 600 MG, (300 MG X 2)
     Route: 065
     Dates: end: 20040419
  6. KEPPRA [Suspect]
     Active Substance: LEVETIRACETAM
     Dosage: 2500 MG,QD (1000 PLUS 1500 MG)
     Route: 065
     Dates: start: 20040419
  7. ORFIRIL [Suspect]
     Active Substance: VALPROIC ACID
     Dosage: 1500 MG, QD (600 PLUS 900 MG)
     Route: 065
  8. ORFIRIL [Suspect]
     Active Substance: VALPROIC ACID
     Dosage: 900 MG, QD (300 PLUS 600 MG )
     Route: 065
     Dates: start: 200511
  9. TRILEPTAL [Suspect]
     Active Substance: OXCARBAZEPINE
     Dosage: 1200 MG, QD(600MG X2 RE-STARTED)
     Route: 065
     Dates: start: 200312
  10. KEPPRA [Suspect]
     Active Substance: LEVETIRACETAM
     Indication: EPILEPSY
     Dosage: 2000 MG, QD
     Route: 065
     Dates: start: 20031023
  11. KEPPRA [Suspect]
     Active Substance: LEVETIRACETAM
     Dosage: 1500 MG, QD (500 PLUS 1000 MG)
     Route: 065
  12. ORFIRIL [Suspect]
     Active Substance: VALPROIC ACID
     Dosage: 1200 MG, QD (600 MG X 2 (RE-STARTED))
     Route: 065
  13. FENEMAL [Suspect]
     Active Substance: PHENOBARBITAL
     Indication: EPILEPSY
     Route: 065
  14. ORFIRIL [Suspect]
     Active Substance: VALPROIC ACID
     Dosage: 1200 MG, QD (600 MG X 2 (RE-STARTED))
     Route: 065
     Dates: start: 200312
  15. ORFIRIL [Suspect]
     Active Substance: VALPROIC ACID
     Dosage: 900 MG, QD (300 PLUS 600 MG DURING 3 PREGNANCY)
     Route: 065
     Dates: start: 200404
  16. TRILEPTAL [Suspect]
     Active Substance: OXCARBAZEPINE
     Indication: EPILEPSY
     Dosage: 1200 MG, QD (600MG X2 RE-STARTED)
     Route: 065
     Dates: start: 19951124, end: 2003
  17. ORFIRIL [Suspect]
     Active Substance: VALPROIC ACID
     Dosage: 1200 MG, QD (600 MG X 2 (RE-STARTED))
     Route: 065
     Dates: start: 200404

REACTIONS (32)
  - Aphasia [Unknown]
  - Anxiety [Unknown]
  - Social anxiety disorder [Unknown]
  - Fatigue [Unknown]
  - Dysarthria [Unknown]
  - Dizziness [Unknown]
  - Aggression [Unknown]
  - Dyspnoea [Unknown]
  - Maternal exposure timing unspecified [Recovered/Resolved]
  - Chest discomfort [Unknown]
  - Drop attacks [Unknown]
  - Pulmonary embolism [Unknown]
  - Metabolic disorder [Unknown]
  - Sleep paralysis [Unknown]
  - Umbilical cord abnormality [Recovered/Resolved]
  - Somnolence [Unknown]
  - Epilepsy [Unknown]
  - Irritability [Unknown]
  - Feeling drunk [Recovered/Resolved]
  - Amniocentesis abnormal [Recovered/Resolved]
  - Pruritus [Recovered/Resolved]
  - Tension headache [Unknown]
  - Drug effect incomplete [Unknown]
  - Drug ineffective [Recovered/Resolved]
  - Palpitations [Unknown]
  - Headache [Recovered/Resolved]
  - Depressed mood [Unknown]
  - Memory impairment [Unknown]
  - Myoclonic epilepsy [Unknown]
  - Rash [Unknown]
  - Petit mal epilepsy [Recovered/Resolved]
  - Generalised tonic-clonic seizure [Unknown]

NARRATIVE: CASE EVENT DATE: 1995
